FAERS Safety Report 6739144-8 (Version None)
Quarter: 2010Q2

REPORT INFORMATION
  Report Type: 
  Country: None (occurrence: None)
  Receive Date: 20100525
  Receipt Date: 20100513
  Transmission Date: 20101027
  Serious: Yes (Disabling, Other)
  Sender: FDA-Public Use
  Company Number: US-JNJFOC-20091207874

PATIENT
  Sex: Female

DRUGS (2)
  1. TYLENOL (CAPLET) [Suspect]
  2. TYLENOL (CAPLET) [Suspect]
     Indication: PAIN

REACTIONS (5)
  - GASTRIC DISORDER [None]
  - HAEMATOMA [None]
  - HAEMORRHAGE [None]
  - NAUSEA [None]
  - PRODUCT QUALITY ISSUE [None]
